FAERS Safety Report 4870113-9 (Version None)
Quarter: 2005Q4

REPORT INFORMATION
  Report Type: 
  Country: None (occurrence: None)
  Receive Date: 20051229
  Receipt Date: 20051229
  Transmission Date: 20060501
  Serious: Yes (Hospitalization)
  Sender: FDA-Public Use
  Company Number: None

PATIENT
  Sex: Male
  Weight: 59 kg

DRUGS (2)
  1. CETUXIMAB (400MG/M2) [Suspect]
     Indication: OESOPHAGEAL CARCINOMA
     Dosage: 400   LOADING    IV
     Route: 042
     Dates: start: 20051028
  2. CETUXIMAB  (250MG/M2) [Suspect]
     Indication: OESOPHAGEAL CARCINOMA
     Dosage: 250   WEEKLY   IV
     Route: 042
     Dates: start: 20051111, end: 20051125

REACTIONS (7)
  - ANASTOMOTIC LEAK [None]
  - DUODENAL STENOSIS [None]
  - INTESTINAL OBSTRUCTION [None]
  - MALIGNANT NEOPLASM PROGRESSION [None]
  - NAUSEA [None]
  - STENT OCCLUSION [None]
  - VOMITING [None]
